FAERS Safety Report 14342756 (Version 2)
Quarter: 2018Q1

REPORT INFORMATION
  Report Type: Report from Study
  Country: US (occurrence: US)
  Receive Date: 20180102
  Receipt Date: 20180129
  Transmission Date: 20180509
  Serious: Yes (Hospitalization)
  Sender: FDA-Public Use
  Company Number: US-JNJFOC-20170915438

PATIENT
  Age: 53 Year
  Sex: Male

DRUGS (4)
  1. CLINDAMYCIN. [Concomitant]
     Active Substance: CLINDAMYCIN
  2. ALLOPURINOL. [Concomitant]
     Active Substance: ALLOPURINOL
  3. IMBRUVICA [Suspect]
     Active Substance: IBRUTINIB
     Indication: CHRONIC LYMPHOCYTIC LEUKAEMIA
     Route: 048
     Dates: start: 20170907
  4. ATENOLOL. [Concomitant]
     Active Substance: ATENOLOL

REACTIONS (8)
  - Stomatitis haemorrhagic [Not Recovered/Not Resolved]
  - Lymphadenopathy [Not Recovered/Not Resolved]
  - Stomatitis [Recovering/Resolving]
  - Mucosal inflammation [Recovering/Resolving]
  - Nausea [Not Recovered/Not Resolved]
  - Pollakiuria [Not Recovered/Not Resolved]
  - Oral disorder [Unknown]
  - Mouth haemorrhage [Recovering/Resolving]

NARRATIVE: CASE EVENT DATE: 20170914
